FAERS Safety Report 18760576 (Version 1)
Quarter: 2021Q1

REPORT INFORMATION
  Report Type: Other
  Country: US (occurrence: US)
  Receive Date: 20210120
  Receipt Date: 20210120
  Transmission Date: 20210419
  Serious: No
  Sender: FDA-Public Use
  Company Number: US-ROCHE-2752959

PATIENT
  Sex: Female

DRUGS (1)
  1. OCREVUS [Suspect]
     Active Substance: OCRELIZUMAB
     Indication: MULTIPLE SCLEROSIS
     Dosage: PRESCRIBED: INITIAL DOSE INFUSE 300MG IV DAY 1, REPEAT ON DAY 15, SUBSEQUENT DOSE 600MG EVERY 6 MONT
     Route: 042
     Dates: start: 20190121

REACTIONS (1)
  - COVID-19 [Unknown]
